FAERS Safety Report 4748813-0 (Version None)
Quarter: 2005Q3

REPORT INFORMATION
  Report Type: 
  Country: None (occurrence: None)
  Receive Date: 20050817
  Receipt Date: 20050804
  Transmission Date: 20060218
  Serious: Yes (Hospitalization)
  Sender: FDA-Public Use
  Company Number: 2005BI009595

PATIENT
  Age: 67 Year
  Sex: Female

DRUGS (21)
  1. AVONEX [Suspect]
     Indication: MULTIPLE SCLEROSIS
     Dosage: IM
     Route: 030
     Dates: start: 19980101, end: 20030501
  2. AVONEX [Suspect]
     Indication: MULTIPLE SCLEROSIS
     Dosage: QW; IM
     Route: 030
     Dates: start: 20030101
  3. AVONEX [Suspect]
     Indication: MULTIPLE SCLEROSIS
     Dosage: 30 UG; QW; IM
     Route: 030
  4. CELEXA [Concomitant]
  5. MIACALCIN [Concomitant]
  6. IBUPROFEN [Concomitant]
  7. VITAMIN CAP [Concomitant]
  8. CALCIUM GLUCONATE [Concomitant]
  9. VITAMIN D [Concomitant]
  10. ASCORBIC ACID [Concomitant]
  11. VITAMIN E [Concomitant]
  12. BACLOFEN [Concomitant]
  13. ASPIRIN [Concomitant]
  14. NEURONTIN [Concomitant]
  15. PREVACID [Concomitant]
  16. BOTOX [Concomitant]
  17. ZANAFLEX [Concomitant]
  18. PROCARDIA [Concomitant]
  19. PLAVIX [Concomitant]
  20. LEXAPRO [Concomitant]
  21. PREDNISONE TAB [Concomitant]

REACTIONS (3)
  - ASTHENIA [None]
  - FALL [None]
  - LOWER LIMB FRACTURE [None]
